FAERS Safety Report 14394874 (Version 1)
Quarter: 2018Q1

REPORT INFORMATION
  Report Type: Spontaneous
  Country: US (occurrence: US)
  Receive Date: 20180116
  Receipt Date: 20180116
  Transmission Date: 20180509
  Serious: No
  Sender: FDA-Public Use
  Company Number: US-ALLERGAN-1705785US

PATIENT
  Age: 57 Year
  Sex: Female

DRUGS (2)
  1. BOTOX COSMETIC [Suspect]
     Active Substance: ONABOTULINUMTOXINA
     Indication: SKIN WRINKLING
     Dosage: 15 UNITS, SINGLE
     Route: 030
     Dates: start: 20170118, end: 20170118
  2. BOTOX COSMETIC [Suspect]
     Active Substance: ONABOTULINUMTOXINA
     Indication: SKIN WRINKLING
     Dosage: 25 UNITS, SINGLE
     Route: 030
     Dates: start: 20170118, end: 20170118

REACTIONS (5)
  - Rash [Recovered/Resolved]
  - Eye swelling [Recovered/Resolved]
  - Eyelid oedema [Recovered/Resolved]
  - Swelling face [Recovered/Resolved]
  - Off label use [Unknown]

NARRATIVE: CASE EVENT DATE: 20170118
